FAERS Safety Report 7060081-6 (Version None)
Quarter: 2010Q4

REPORT INFORMATION
  Report Type: 
  Country: None (occurrence: None)
  Receive Date: 20101025
  Receipt Date: 20101012
  Transmission Date: 20110411
  Serious: Yes (Hospitalization, Other)
  Sender: FDA-Public Use
  Company Number: PT-ROCHE-679398

PATIENT

DRUGS (2)
  1. MYCOPHENOLATE MOFETIL [Suspect]
     Route: 065
  2. PREDNISONE [Suspect]
     Route: 065

REACTIONS (15)
  - ALVEOLITIS [None]
  - ASPERGILLOSIS [None]
  - ATYPICAL MYCOBACTERIAL INFECTION [None]
  - DISSEMINATED CRYPTOCOCCOSIS [None]
  - EMPYEMA [None]
  - LUNG ABSCESS [None]
  - PLEURAL EFFUSION [None]
  - PNEUMOCYSTIS JIROVECI PNEUMONIA [None]
  - PNEUMONIA [None]
  - PULMONARY ALVEOLAR HAEMORRHAGE [None]
  - RESPIRATORY FAILURE [None]
  - RESPIRATORY TRACT INFECTION [None]
  - STAPHYLOCOCCAL ABSCESS [None]
  - TRACHEOBRONCHITIS [None]
  - VARICELLA [None]
